FAERS Safety Report 6970658-1 (Version None)
Quarter: 2010Q3

REPORT INFORMATION
  Report Type: 
  Country: None (occurrence: None)
  Receive Date: 20100908
  Receipt Date: 20100827
  Transmission Date: 20110219
  Serious: Yes (Hospitalization, Other)
  Sender: FDA-Public Use
  Company Number: US-PFIZER INC-2010080373

PATIENT
  Sex: Male

DRUGS (3)
  1. CHANTIX [Suspect]
     Indication: SMOKING CESSATION THERAPY
     Dosage: UNK
     Route: 048
     Dates: start: 20080819, end: 20080906
  2. ASPIRIN [Concomitant]
     Indication: PAIN
     Dosage: UNK
     Dates: start: 20050101
  3. ZANTAC [Concomitant]
     Indication: GASTROOESOPHAGEAL REFLUX DISEASE
     Dosage: UNK
     Dates: start: 20060101, end: 20090101

REACTIONS (4)
  - AGGRESSION [None]
  - ANGER [None]
  - MOOD SWINGS [None]
  - SUICIDAL BEHAVIOUR [None]
